FAERS Safety Report 19724542 (Version 1)
Quarter: 2021Q3

REPORT INFORMATION
  Report Type: Spontaneous
  Country: DE (occurrence: DE)
  Receive Date: 20210819
  Receipt Date: 20210819
  Transmission Date: 20211014
  Serious: Yes (Hospitalization)
  Sender: FDA-Public Use
  Company Number: DE-MYLANLABS-2021M1053130

PATIENT
  Age: 15 Year
  Sex: Female
  Weight: 48 kg

DRUGS (1)
  1. ETHINYLESTRADIOL/LEVONORGESTREL [Suspect]
     Active Substance: ETHINYL ESTRADIOL\LEVONORGESTREL
     Indication: CONTRACEPTION
     Dosage: 1 DOSAGE FORM, QD (DAILY DOSE: 1 DF DOSAGE FORM EVERY DAYS)
     Route: 048
     Dates: start: 20200206

REACTIONS (3)
  - Headache [Recovered/Resolved]
  - Vomiting [Recovered/Resolved]
  - Syncope [Recovered/Resolved]

NARRATIVE: CASE EVENT DATE: 20200217
